FAERS Safety Report 7150573-3 (Version None)
Quarter: 2010Q4

REPORT INFORMATION
  Report Type: 
  Country: None (occurrence: None)
  Receive Date: 20101126
  Receipt Date: 20101116
  Transmission Date: 20110411
  Serious: Yes (Other)
  Sender: FDA-Public Use
  Company Number: 2010SP060437

PATIENT

DRUGS (2)
  1. PEGINTERFERON ALFA-2B [Suspect]
     Indication: HEPATITIS C
     Dates: end: 20100907
  2. RIBAVIRIN [Suspect]
     Indication: HEPATITIS C
     Dates: end: 20100907

REACTIONS (1)
  - HEPATIC NEOPLASM [None]
